FAERS Safety Report 5971384-8 (Version None)
Quarter: 2008Q4

REPORT INFORMATION
  Report Type: 
  Country: None (occurrence: None)
  Receive Date: 20081130
  Receipt Date: 20081124
  Transmission Date: 20090506
  Serious: Yes (Other)
  Sender: FDA-Public Use
  Company Number: CA-PFIZER INC-2008099667

PATIENT
  Age: 62 Year
  Sex: Female

DRUGS (5)
  1. CHANTIX [Suspect]
     Indication: SMOKING CESSATION THERAPY
  2. RISEDRONATE SODIUM [Concomitant]
  3. MESALAMINE [Concomitant]
  4. LISINOPRIL AND HYDROCHLOROTHIAZIDE [Concomitant]
  5. CALCIUM WITH VITAMIN D [Concomitant]

REACTIONS (1)
  - CROHN'S DISEASE [None]
